FAERS Safety Report 9429038 (Version 1)
Quarter: 2013Q3

REPORT INFORMATION
  Report Type: Spontaneous
  Country: US (occurrence: US)
  Receive Date: 20130730
  Receipt Date: 20130730
  Transmission Date: 20140515
  Serious: No
  Sender: FDA-Public Use
  Company Number: US-ABBOTT-12P-163-1008590-00

PATIENT
  Sex: Female
  Weight: 61.29 kg

DRUGS (6)
  1. NIASPAN (COATED) [Suspect]
     Indication: PRODUCT USED FOR UNKNOWN INDICATION
     Dates: start: 201208, end: 201210
  2. NIASPAN (COATED) [Suspect]
     Dates: start: 201210, end: 201211
  3. NIASPAN (COATED) [Suspect]
     Dates: start: 201211
  4. COUMADIN [Concomitant]
     Indication: DEEP VEIN THROMBOSIS
  5. COUMADIN [Concomitant]
     Indication: PULMONARY EMBOLISM
  6. SYNTHROID [Concomitant]
     Indication: PRODUCT USED FOR UNKNOWN INDICATION

REACTIONS (5)
  - Muscular weakness [Not Recovered/Not Resolved]
  - Myalgia [Not Recovered/Not Resolved]
  - Flushing [Recovered/Resolved]
  - Temperature intolerance [Not Recovered/Not Resolved]
  - Decreased appetite [Not Recovered/Not Resolved]
